FAERS Safety Report 13390048 (Version 1)
Quarter: 2017Q1

REPORT INFORMATION
  Report Type: Report from Study
  Country: JP (occurrence: JP)
  Receive Date: 20170331
  Receipt Date: 20170331
  Transmission Date: 20170429
  Serious: Yes (Hospitalization)
  Sender: FDA-Public Use
  Company Number: JP-AMGEN-JPNNI2017049759

PATIENT
  Age: 77 Year
  Sex: Female
  Weight: 46 kg

DRUGS (33)
  1. DENOSUMAB [Suspect]
     Active Substance: DENOSUMAB
     Dosage: 120 MG, UNK
     Route: 058
     Dates: start: 20151105, end: 20151210
  2. ACICLOVIN [Concomitant]
     Active Substance: ACYCLOVIR
     Dosage: 200 MG, QD
     Route: 048
     Dates: start: 20140501, end: 20150713
  3. DENOSUMAB [Suspect]
     Active Substance: DENOSUMAB
     Dosage: 120 MG, UNK
     Route: 058
     Dates: start: 20151210, end: 20151210
  4. CALFINA [Concomitant]
     Active Substance: ALFACALCIDOL
     Dosage: 0.5 MUG, QD
     Route: 048
     Dates: start: 20140424
  5. DENOSUMAB [Suspect]
     Active Substance: DENOSUMAB
     Dosage: 120 MG, UNK
     Route: 058
     Dates: start: 20140717, end: 20151210
  6. DENOSUMAB [Suspect]
     Active Substance: DENOSUMAB
     Dosage: 120 MG, UNK
     Route: 058
     Dates: start: 20150219, end: 20151210
  7. DENOSUMAB [Suspect]
     Active Substance: DENOSUMAB
     Dosage: 120 MG, UNK
     Route: 058
     Dates: start: 20150903, end: 20151210
  8. DENOSUMAB [Suspect]
     Active Substance: DENOSUMAB
     Dosage: 120 MG, UNK
     Route: 058
     Dates: start: 20141106, end: 20151210
  9. DENOSUMAB [Suspect]
     Active Substance: DENOSUMAB
     Dosage: 120 MG, UNK
     Route: 058
     Dates: start: 20150514, end: 20151210
  10. DENOSUMAB [Suspect]
     Active Substance: DENOSUMAB
     Dosage: 120 MG, UNK
     Route: 058
     Dates: start: 20140911, end: 20151210
  11. DENOSUMAB [Suspect]
     Active Substance: DENOSUMAB
     Dosage: 120 MG, UNK
     Route: 058
     Dates: start: 20150108, end: 20151210
  12. DENOSUMAB [Suspect]
     Active Substance: DENOSUMAB
     Dosage: 120 MG, UNK
     Route: 058
     Dates: start: 20150319, end: 20151210
  13. DENOSUMAB [Suspect]
     Active Substance: DENOSUMAB
     Dosage: 120 MG, UNK
     Route: 058
     Dates: start: 20150611, end: 20151210
  14. DENOSUMAB [Suspect]
     Active Substance: DENOSUMAB
     Dosage: 120 MG, UNK
     Route: 058
     Dates: start: 20150714, end: 20151210
  15. FLUCONAZOLE. [Concomitant]
     Active Substance: FLUCONAZOLE
     Dosage: 100 MG, QD
     Route: 065
     Dates: start: 20140501
  16. ISCOTIN [Concomitant]
     Active Substance: ISONIAZID
     Dosage: 300 MG, QD
     Route: 065
     Dates: start: 20140501
  17. CELECOX [Concomitant]
     Active Substance: CELECOXIB
     Dosage: 200 MG, QD
     Route: 048
     Dates: start: 20140501
  18. AMLODIPINE [Concomitant]
     Active Substance: AMLODIPINE BESYLATE
     Dosage: 5 MG, QD
     Route: 048
  19. DENOSUMAB [Suspect]
     Active Substance: DENOSUMAB
     Dosage: 120 MG, UNK
     Route: 058
     Dates: start: 20150416, end: 20151210
  20. LENALIDOMIDE [Concomitant]
     Active Substance: LENALIDOMIDE
     Dosage: UNK
     Route: 065
     Dates: start: 20160107
  21. NEXIUM [Concomitant]
     Active Substance: ESOMEPRAZOLE MAGNESIUM
     Dosage: 20 MG, QD
     Route: 065
     Dates: start: 20140501
  22. MIYA-BM [Concomitant]
     Active Substance: CLOSTRIDIUM BUTYRICUM SPORES STRAIN M-55
     Dosage: 3 DF, QD
     Route: 048
     Dates: start: 20140501, end: 20150713
  23. DENOSUMAB [Suspect]
     Active Substance: DENOSUMAB
     Dosage: 120 MG, UNK
     Route: 058
     Dates: start: 20140619, end: 20151210
  24. DENOSUMAB [Suspect]
     Active Substance: DENOSUMAB
     Dosage: 120 MG, UNK
     Route: 058
     Dates: start: 20140814, end: 20151210
  25. ALENDRONATE [Concomitant]
     Active Substance: ALENDRONATE SODIUM
     Dosage: 35 MG, QD
     Route: 048
     Dates: end: 20160125
  26. DENOTAS [Concomitant]
     Active Substance: CALCIUM CARBONATE\CHOLECALCIFEROL\MAGNESIUM CARBONATE
     Dosage: 2 DF, QD
     Route: 048
     Dates: start: 20140501, end: 20160303
  27. DEXAMETHASONE. [Concomitant]
     Active Substance: DEXAMETHASONE
     Dosage: UNK
     Route: 065
     Dates: start: 20160107
  28. DAIPHEN [Concomitant]
     Active Substance: SULFAMETHOXAZOLE\TRIMETHOPRIM
     Dosage: 1 DF, 3 TIMES/WK
     Route: 048
     Dates: start: 20150125
  29. BLOPRESS [Concomitant]
     Active Substance: CANDESARTAN CILEXETIL
     Dosage: 8 MG, QD
     Route: 048
  30. DENOSUMAB [Suspect]
     Active Substance: DENOSUMAB
     Indication: PLASMA CELL MYELOMA
     Dosage: 120 MG, UNK
     Route: 058
     Dates: start: 20140501, end: 20151210
  31. DENOSUMAB [Suspect]
     Active Substance: DENOSUMAB
     Dosage: 120 MG, UNK
     Route: 058
     Dates: start: 20141204, end: 20151210
  32. PROPIVERINE HYDROCHLORIDE [Concomitant]
     Active Substance: PROPIVERINE HYDROCHLORIDE
     Dosage: 10 MG, QD
     Route: 048
  33. EPERISSER [Concomitant]
     Dosage: 150 MG, QD
     Route: 048

REACTIONS (1)
  - Osteonecrosis of jaw [Recovered/Resolved]

NARRATIVE: CASE EVENT DATE: 20160128
